FAERS Safety Report 8279064-3 (Version None)
Quarter: 2012Q2

REPORT INFORMATION
  Report Type: 
  Country: None (occurrence: None)
  Receive Date: 20120412
  Receipt Date: 20120407
  Transmission Date: 20120825
  Serious: Yes (Hospitalization)
  Sender: FDA-Public Use
  Company Number: PHHY2012JP030116

PATIENT
  Age: 13 Year
  Sex: Male

DRUGS (3)
  1. VALPROIC ACID [Concomitant]
  2. LAMOTRGINE [Suspect]
     Indication: PETIT MAL EPILEPSY
     Dosage: 5 MG, UNK
  3. LAMOTRGINE [Suspect]
     Dosage: 45 MG, UNK

REACTIONS (3)
  - CONVULSION [None]
  - HYPONATRAEMIA [None]
  - INAPPROPRIATE ANTIDIURETIC HORMONE SECRETION [None]
